FAERS Safety Report 17934506 (Version 1)
Quarter: 2020Q2

REPORT INFORMATION
  Report Type: Spontaneous
  Country: US (occurrence: US)
  Receive Date: 20200623
  Receipt Date: 20200623
  Transmission Date: 20200714
  Serious: Yes (Hospitalization)
  Sender: FDA-Public Use
  Company Number: None

PATIENT
  Age: 64 Year
  Sex: Female

DRUGS (6)
  1. OMEGA-3 ACIDS [Concomitant]
     Active Substance: OMEGA-3 FATTY ACIDS
  2. TOPROL XL [Concomitant]
     Active Substance: METOPROLOL SUCCINATE
  3. CALCIUM [Concomitant]
     Active Substance: CALCIUM
  4. MULTIVITAMIN [Concomitant]
     Active Substance: VITAMINS
  5. ENBREL [Suspect]
     Active Substance: ETANERCEPT
     Indication: RHEUMATOID ARTHRITIS
     Dosage: ?          OTHER FREQUENCY:ONCE EVERY WEEK;?
     Route: 058
     Dates: start: 20150818
  6. SYNTHROID [Concomitant]
     Active Substance: LEVOTHYROXINE SODIUM

REACTIONS (1)
  - Appendicectomy [None]

NARRATIVE: CASE EVENT DATE: 20200620
